FAERS Safety Report 8067791-2 (Version None)
Quarter: 2012Q1

REPORT INFORMATION
  Report Type: 
  Country: None (occurrence: None)
  Receive Date: 20120124
  Receipt Date: 20120117
  Transmission Date: 20120608
  Serious: Yes (Other)
  Sender: FDA-Public Use
  Company Number: FR-ASTRAZENECA-2012SE03810

PATIENT
  Sex: Male

DRUGS (5)
  1. QUETIAPINE FUMARATE [Suspect]
     Indication: MANIA
     Route: 048
     Dates: start: 20111228, end: 20120105
  2. QUETIAPINE FUMARATE [Suspect]
     Route: 048
     Dates: start: 20120106, end: 20120111
  3. QUETIAPINE FUMARATE [Suspect]
     Dosage: EVERY DAY
     Route: 048
     Dates: start: 20120111, end: 20120113
  4. LOXAPINE HCL [Concomitant]
  5. LEPTICUR [Concomitant]

REACTIONS (1)
  - SUBILEUS [None]
